FAERS Safety Report 9163914 (Version 1)
Quarter: 2013Q1

REPORT INFORMATION
  Report Type: Spontaneous
  Country: CA (occurrence: CA)
  Receive Date: 20130314
  Receipt Date: 20130314
  Transmission Date: 20140127
  Serious: Yes (Other)
  Sender: FDA-Public Use
  Company Number: CA-PFIZER INC-2012227077

PATIENT
  Age: 55 Year
  Sex: Female
  Weight: 86.2 kg

DRUGS (7)
  1. CHAMPIX [Suspect]
     Indication: SMOKING CESSATION THERAPY
     Dosage: 0.5 MG, 2X/DAY
     Route: 048
     Dates: start: 20080903, end: 20080909
  2. CHAMPIX [Suspect]
     Dosage: 1 MG, 1X/DAY
     Route: 048
     Dates: start: 20080910, end: 20081014
  3. RIFAMPIN [Concomitant]
     Indication: CHRONIC SINUSITIS
     Dosage: 300 MG, 2X/DAY FOR 7 DAYS
  4. CEFAZOLIN [Concomitant]
     Indication: CHRONIC SINUSITIS
     Dosage: 2 G, EVERY 8 HOURS
     Route: 042
  5. NADOLOL [Concomitant]
     Dosage: 200 MG, 1X/DAY
  6. HYDROCHLOROTHIAZIDE [Concomitant]
     Dosage: 25 MG, 1X/DAY
  7. RABEPRAZOLE [Concomitant]
     Dosage: 20 MG, 1X/DAY

REACTIONS (9)
  - Violence-related symptom [Recovered/Resolved]
  - Homicidal ideation [Recovered/Resolved]
  - Depressed mood [Recovered/Resolved]
  - Weight decreased [Recovered/Resolved]
  - Nausea [Recovered/Resolved]
  - Vomiting [Recovered/Resolved]
  - Vertigo [Recovered/Resolved]
  - Headache [Recovered/Resolved]
  - Disturbance in attention [Recovered/Resolved]
